FAERS Safety Report 13054904 (Version 1)
Quarter: 2016Q4

REPORT INFORMATION
  Report Type: Spontaneous
  Country: US (occurrence: US)
  Receive Date: 20161222
  Receipt Date: 20161222
  Transmission Date: 20170207
  Serious: No
  Sender: FDA-Public Use
  Company Number: US-PFIZER INC-2016580700

PATIENT
  Age: 61 Year
  Sex: Female
  Weight: 61 kg

DRUGS (1)
  1. IBRANCE [Suspect]
     Active Substance: PALBOCICLIB
     Indication: BREAST CANCER METASTATIC
     Dosage: 125 MG, DAILY (DAYS 1-21 Q28 DAYS)
     Route: 048
     Dates: start: 20161123

REACTIONS (9)
  - White blood cell count decreased [Unknown]
  - Breast disorder [Unknown]
  - Scab [Unknown]
  - Alopecia [Unknown]
  - Candida infection [Unknown]
  - Pain [Unknown]
  - Decreased appetite [Unknown]
  - Glossodynia [Unknown]
  - Nausea [Unknown]
